FAERS Safety Report 10606821 (Version 1)
Quarter: 2014Q4

REPORT INFORMATION
  Report Type: Spontaneous
  Country: US (occurrence: None)
  Receive Date: 20141124
  Receipt Date: 20141124
  Transmission Date: 20150529
  Serious: Yes (Hospitalization)
  Sender: FDA-Public Use
  Company Number: None

PATIENT
  Age: 68 Year
  Sex: Male
  Weight: 120.6 kg

DRUGS (15)
  1. METFORMIN [Concomitant]
     Active Substance: METFORMIN HYDROCHLORIDE
  2. GLIPIZIDE. [Concomitant]
     Active Substance: GLIPIZIDE
  3. METOPROLOL TARTRATE. [Concomitant]
     Active Substance: METOPROLOL TARTRATE
  4. PREGABALIN. [Concomitant]
     Active Substance: PREGABALIN
  5. OXYCODONE [Concomitant]
     Active Substance: OXYCODONE
  6. NTG [Concomitant]
     Active Substance: NITROGLYCERIN
  7. BACTROBAN [Concomitant]
     Active Substance: MUPIROCIN\MUPIROCIN CALCIUM
  8. ULTRAM [Concomitant]
     Active Substance: TRAMADOL HYDROCHLORIDE
  9. COUMADIN [Suspect]
     Active Substance: WARFARIN SODIUM
     Indication: ATRIAL FIBRILLATION
     Dosage: CHRONIC?SSTTH
     Route: 048
  10. FUROSEMIDE. [Concomitant]
     Active Substance: FUROSEMIDE
  11. APAP [Concomitant]
     Active Substance: ACETAMINOPHEN
  12. ZANTAC [Concomitant]
     Active Substance: RANITIDINE HYDROCHLORIDE
  13. ZOCOR [Concomitant]
     Active Substance: SIMVASTATIN
  14. DIGOXIN. [Concomitant]
     Active Substance: DIGOXIN
  15. KCL [Concomitant]
     Active Substance: POTASSIUM CHLORIDE

REACTIONS (3)
  - Spontaneous haematoma [None]
  - Haemorrhagic anaemia [None]
  - International normalised ratio increased [None]

NARRATIVE: CASE EVENT DATE: 20140814
